FAERS Safety Report 6999206-7 (Version None)
Quarter: 2010Q3

REPORT INFORMATION
  Report Type: 
  Country: None (occurrence: None)
  Receive Date: 20100920
  Receipt Date: 20090721
  Transmission Date: 20110219
  Serious: Yes (Other)
  Sender: FDA-Public Use
  Company Number: US-ASTRAZENECA-2007UW05092

PATIENT
  Age: 10587 Day
  Sex: Female
  Weight: 102.5 kg

DRUGS (4)
  1. SEROQUEL [Suspect]
     Dosage: 200-300 MG
     Route: 048
     Dates: start: 20060701
  2. DICYCLOMINE [Concomitant]
     Dosage: 20 MG
     Dates: start: 20061101
  3. TRILEPTAL [Concomitant]
     Dosage: 600 MG
     Dates: start: 20060914
  4. LEXAPRO [Concomitant]
     Dates: start: 20060914

REACTIONS (3)
  - DIABETES MELLITUS [None]
  - DIABETIC KETOACIDOSIS [None]
  - PANCREATITIS [None]
